FAERS Safety Report 20156845 (Version 1)
Quarter: 2021Q4

REPORT INFORMATION
  Report Type: Spontaneous
  Country: US (occurrence: US)
  Receive Date: 20211207
  Receipt Date: 20211207
  Transmission Date: 20220303
  Serious: No
  Sender: FDA-Public Use
  Company Number: US-AMGEN-USASP2021187860

PATIENT
  Age: 57 Year
  Sex: Male

DRUGS (8)
  1. RITUXIMAB [Suspect]
     Active Substance: RITUXIMAB
     Indication: B-cell lymphoma stage IV
     Dosage: UNK
     Route: 065
  2. CYCLOPHOSPHAMIDE [Concomitant]
     Active Substance: CYCLOPHOSPHAMIDE
  3. DOXORUBICIN [Concomitant]
     Active Substance: DOXORUBICIN
  4. ETOPOSIDE [Concomitant]
     Active Substance: ETOPOSIDE
  5. PREDNISONE [Concomitant]
     Active Substance: PREDNISONE
  6. VINCRISTINE [Concomitant]
     Active Substance: VINCRISTINE
  7. CARBOPLATIN [Concomitant]
     Active Substance: CARBOPLATIN
  8. IFOSFAMIDE [Concomitant]
     Active Substance: IFOSFAMIDE

REACTIONS (1)
  - Therapeutic product effect incomplete [Unknown]
